FAERS Safety Report 17679713 (Version 1)
Quarter: 2020Q2

REPORT INFORMATION
  Report Type: Report from Study
  Country: GF (occurrence: GF)
  Receive Date: 20200417
  Receipt Date: 20200417
  Transmission Date: 20200714
  Serious: Yes (Other)
  Sender: FDA-Public Use
  Company Number: GF-VIIV HEALTHCARE LIMITED-GF2020GSK065894

PATIENT

DRUGS (3)
  1. ATAZANAVIR + RITONAVIR [Suspect]
     Active Substance: ATAZANAVIR\RITONAVIR
     Indication: HIV INFECTION
     Dosage: UNK
  2. TENOFOVIR DISOPROXIL FUMARATE. [Suspect]
     Active Substance: TENOFOVIR DISOPROXIL FUMARATE
     Indication: HIV INFECTION
     Dosage: UNK
  3. ABACAVIR. [Suspect]
     Active Substance: ABACAVIR
     Indication: HIV INFECTION
     Dosage: UNK

REACTIONS (6)
  - Histoplasmosis [Unknown]
  - Cytomegalovirus infection [Unknown]
  - Immune reconstitution inflammatory syndrome [Unknown]
  - Colitis ulcerative [Unknown]
  - Enterocolitis haemorrhagic [Unknown]
  - Cardiac arrest [Unknown]
